FAERS Safety Report 14884597 (Version 1)
Quarter: 2018Q2

REPORT INFORMATION
  Report Type: Report from Study
  Country: US (occurrence: US)
  Receive Date: 20180511
  Receipt Date: 20180511
  Transmission Date: 20180711
  Serious: Yes (Hospitalization, Other)
  Sender: FDA-Public Use
  Company Number: US-GILEAD-2018-0336549

PATIENT
  Age: 56 Year
  Sex: Female
  Weight: 78.5 kg

DRUGS (4)
  1. AMBRISENTAN [Suspect]
     Active Substance: AMBRISENTAN
     Indication: PULMONARY ARTERIAL HYPERTENSION
     Dosage: 10 MG, QD
     Route: 065
     Dates: start: 20171115
  2. LASIX [Concomitant]
     Active Substance: FUROSEMIDE
  3. SILDENAFIL. [Concomitant]
     Active Substance: SILDENAFIL
  4. WARFARIN [Concomitant]
     Active Substance: WARFARIN

REACTIONS (9)
  - Swelling [Unknown]
  - Chest pain [Unknown]
  - Peripheral swelling [Recovered/Resolved]
  - Dizziness exertional [Unknown]
  - Cardiac failure [Unknown]
  - Joint swelling [Unknown]
  - Presyncope [Unknown]
  - Dyspnoea exertional [Unknown]
  - Fatigue [Unknown]

NARRATIVE: CASE EVENT DATE: 20180330
